FAERS Safety Report 18512402 (Version 1)
Quarter: 2020Q4

REPORT INFORMATION
  Report Type: Report from Study
  Country: GB (occurrence: GB)
  Receive Date: 20201117
  Receipt Date: 20201117
  Transmission Date: 20210114
  Serious: Yes (Life-Threatening)
  Sender: FDA-Public Use
  Company Number: GB-TEVA-2020-GB-1848324

PATIENT
  Weight: 32 kg

DRUGS (7)
  1. MORPHINE SULPHATE [Concomitant]
     Active Substance: MORPHINE SULFATE
     Indication: PAIN
     Dosage: 20 MILLIGRAM DAILY;
     Dates: start: 20170816, end: 20170827
  2. CYTARABINE. [Suspect]
     Active Substance: CYTARABINE
     Dosage: 2200 MILLIGRAM DAILY;
     Route: 041
     Dates: start: 20170728, end: 20170730
  3. OMEPRAZOLE. [Concomitant]
     Active Substance: OMEPRAZOLE
     Dosage: 20 MILLIGRAM DAILY;
     Dates: start: 20170815, end: 20170827
  4. IDARUBICIN HYDROCHLORIDE. [Suspect]
     Active Substance: IDARUBICIN HYDROCHLORIDE
     Dosage: 8.8 MILLIGRAM DAILY;
     Route: 041
     Dates: start: 20170728, end: 20170730
  5. ARTIFICIAL TEARS /00222401/ [Concomitant]
     Active Substance: PROPYLENE GLYCOL
     Indication: DRY EYE
     Dosage: 4X/DAY
     Dates: start: 20170811, end: 20170820
  6. FLUDARABINE [Suspect]
     Active Substance: FLUDARABINE PHOSPHATE
     Dosage: 33 MILLIGRAM DAILY;
     Route: 041
     Dates: start: 201707, end: 20170730
  7. GEMTUZUMAB OZOGAMICIN [Suspect]
     Active Substance: GEMTUZUMAB OZOGAMICIN
     Dosage: UNK
     Route: 041

REACTIONS (1)
  - Lower gastrointestinal haemorrhage [Not Recovered/Not Resolved]

NARRATIVE: CASE EVENT DATE: 20170818
